FAERS Safety Report 15111026 (Version 1)
Quarter: 2018Q3

REPORT INFORMATION
  Report Type: Spontaneous
  Country: US (occurrence: US)
  Receive Date: 20180705
  Receipt Date: 20180705
  Transmission Date: 20181010
  Serious: No
  Sender: FDA-Public Use
  Company Number: US-TEVA-2018-US-919843

PATIENT
  Age: 69 Year
  Sex: Female

DRUGS (1)
  1. ATENOLOL. [Suspect]
     Active Substance: ATENOLOL
     Route: 065

REACTIONS (6)
  - Chest pain [Unknown]
  - Abdominal discomfort [Unknown]
  - Malaise [Unknown]
  - Heart rate irregular [Unknown]
  - Diarrhoea [Unknown]
  - Wheezing [Unknown]
